FAERS Safety Report 19265366 (Version 5)
Quarter: 2021Q3

REPORT INFORMATION
  Report Type: Report from Study
  Country: US (occurrence: US)
  Receive Date: 20210517
  Receipt Date: 20210709
  Transmission Date: 20211014
  Serious: No
  Sender: FDA-Public Use
  Company Number: NVSC2021US103722

PATIENT
  Sex: Female

DRUGS (3)
  1. VITAMIN D2 [Concomitant]
     Active Substance: ERGOCALCIFEROL
     Indication: PRODUCT USED FOR UNKNOWN INDICATION
     Route: 065
  2. KESIMPTA [Suspect]
     Active Substance: OFATUMUMAB
     Indication: MULTIPLE SCLEROSIS
     Dosage: 20 MG/KG, QW
     Route: 058
     Dates: start: 20210421
  3. MIRTAZAPINE. [Concomitant]
     Active Substance: MIRTAZAPINE
     Indication: PRODUCT USED FOR UNKNOWN INDICATION
     Route: 065

REACTIONS (6)
  - Muscle twitching [Recovered/Resolved]
  - Pain [Recovering/Resolving]
  - Contusion [Recovering/Resolving]
  - Injection site pain [Recovering/Resolving]
  - Amnesia [Unknown]
  - Drug ineffective [Unknown]
